FAERS Safety Report 14223629 (Version 3)
Quarter: 2018Q4

REPORT INFORMATION
  Report Type: Report from Study
  Country: US (occurrence: US)
  Receive Date: 20171125
  Receipt Date: 20181009
  Transmission Date: 20190204
  Serious: No
  Sender: FDA-Public Use
  Company Number: PHEH2017US037646

PATIENT
  Age: 30 Year
  Sex: Female

DRUGS (1)
  1. COSENTYX [Suspect]
     Active Substance: SECUKINUMAB
     Indication: PSORIASIS
     Dosage: 300 MG, QMO
     Route: 058
     Dates: start: 20170925

REACTIONS (5)
  - Cough [Unknown]
  - Decreased immune responsiveness [Unknown]
  - Bronchitis mycoplasmal [Unknown]
  - Inappropriate schedule of product administration [Unknown]
  - Sinusitis [Unknown]

NARRATIVE: CASE EVENT DATE: 20170928
